FAERS Safety Report 5043671-1 (Version None)
Quarter: 2006Q2

REPORT INFORMATION
  Report Type: 
  Country: None (occurrence: None)
  Receive Date: 20060628
  Receipt Date: 20060606
  Transmission Date: 20061013
  Serious: Yes (Other)
  Sender: FDA-Public Use
  Company Number: US200606002075

PATIENT
  Age: 90 Year
  Sex: Male

DRUGS (2)
  1. FORTEO [Suspect]
     Dosage: 20 UG
     Dates: start: 20040201, end: 20060201
  2. FORTEO PEN (FORTEO PEN) [Concomitant]

REACTIONS (3)
  - ATRIAL FIBRILLATION [None]
  - DISLOCATION OF JOINT PROSTHESIS [None]
  - FALL [None]
